FAERS Safety Report 8998190 (Version 1)
Quarter: 2013Q1

REPORT INFORMATION
  Report Type: Spontaneous
  Country: CA (occurrence: CA)
  Receive Date: 20130104
  Receipt Date: 20130104
  Transmission Date: 20140127
  Serious: Yes (Hospitalization)
  Sender: FDA-Public Use
  Company Number: CA-UCBSA-074176

PATIENT
  Age: 26 Year
  Sex: Male

DRUGS (4)
  1. VIMPAT [Suspect]
     Indication: EPILEPSY
  2. VIMPAT [Suspect]
     Indication: EPILEPSY
     Dosage: DOSE TITRATED TO 300 MG DAILY
  3. CARBAMAZEPINE [Concomitant]
  4. LAMOTRIGINE [Concomitant]

REACTIONS (3)
  - Extrapyramidal disorder [Unknown]
  - Ataxia [Recovered/Resolved]
  - Dizziness [Recovered/Resolved]
